FAERS Safety Report 8810248 (Version 1)
Quarter: 2012Q4

REPORT INFORMATION
  Report Type: 
  Country: MX (occurrence: MX)
  Receive Date: 20120926
  Receipt Date: 20120926
  Transmission Date: 20130627
  Serious: Yes (Death, Other)
  Sender: FDA-Public Use
  Company Number: MX-UCBSA-067210

PATIENT
  Age: 92 Year
  Sex: Female
  Weight: 47 kg

DRUGS (2)
  1. NUBRENZA [Suspect]
     Indication: PARKINSON^S DISEASE
     Route: 062
     Dates: start: 20110201, end: 20120807
  2. SINEMET [Concomitant]
     Indication: PARKINSON^S DISEASE
     Dosage: 250/25 MG TWICE DAILY: 500/50 MG
     Route: 048
     Dates: start: 20090201, end: 20120807

REACTIONS (5)
  - Cardio-respiratory arrest [Fatal]
  - Multi-organ failure [Fatal]
  - Pneumonia [Unknown]
  - Neurological decompensation [Unknown]
  - Aphagia [Unknown]
